FAERS Safety Report 14545009 (Version 1)
Quarter: 2018Q1

REPORT INFORMATION
  Report Type: Spontaneous
  Country: US (occurrence: US)
  Receive Date: 20180216
  Receipt Date: 20180216
  Transmission Date: 20180509
  Serious: Yes (Other)
  Sender: FDA-Public Use
  Company Number: None

PATIENT
  Sex: Male
  Weight: 135 kg

DRUGS (3)
  1. PRAVASTATIN. [Suspect]
     Active Substance: PRAVASTATIN
     Indication: BLOOD CHOLESTEROL INCREASED
     Dosage: ?          QUANTITY:1 TABLET(S);?
     Route: 048
     Dates: start: 20170401, end: 20170801
  2. MULTI VITAMIN-ONE A DAY MENS [Concomitant]
  3. CPAP [Concomitant]
     Active Substance: DEVICE

REACTIONS (6)
  - Disturbance in attention [None]
  - Vomiting [None]
  - Dizziness [None]
  - Headache [None]
  - Sleep disorder [None]
  - Product quality issue [None]

NARRATIVE: CASE EVENT DATE: 20170531
